FAERS Safety Report 13870321 (Version 1)
Quarter: 2017Q3

REPORT INFORMATION
  Report Type: Spontaneous
  Country: BR (occurrence: BR)
  Receive Date: 20170815
  Receipt Date: 20170815
  Transmission Date: 20171127
  Serious: Yes (Other)
  Sender: FDA-Public Use
  Company Number: BR-TERSERA THERAPEUTICS, LLC-2024656

PATIENT
  Age: 58 Year
  Sex: Male

DRUGS (2)
  1. ZOLADEX [Suspect]
     Active Substance: GOSERELIN ACETATE
     Indication: PROSTATE CANCER
     Route: 058
     Dates: end: 20151201
  2. CASODEX [Suspect]
     Active Substance: BICALUTAMIDE
     Route: 048
     Dates: start: 20151201

REACTIONS (8)
  - Trichotillomania [Unknown]
  - Suicidal ideation [Unknown]
  - Depression [Unknown]
  - Pruritus genital [Unknown]
  - Breast pain [Unknown]
  - Gynaecomastia [Unknown]
  - Alopecia [Unknown]
  - Panic disorder [Unknown]

NARRATIVE: CASE EVENT DATE: 20170101
